FAERS Safety Report 7795668-6 (Version None)
Quarter: 2011Q4

REPORT INFORMATION
  Report Type: 
  Country: None (occurrence: None)
  Receive Date: 20111004
  Receipt Date: 20110927
  Transmission Date: 20120403
  Serious: Yes (Other)
  Sender: FDA-Public Use
  Company Number: JP-GLAXOSMITHKLINE-B0751654A

PATIENT
  Age: 62 Year
  Sex: Female

DRUGS (2)
  1. UNKNOWN DRUG [Concomitant]
     Route: 065
  2. LAMICTAL [Suspect]
     Indication: CONVULSION
     Route: 048
     Dates: start: 20110828

REACTIONS (4)
  - AGGRESSION [None]
  - AGITATION [None]
  - DELUSION [None]
  - SPEECH DISORDER [None]
